FAERS Safety Report 19657167 (Version 3)
Quarter: 2021Q4

REPORT INFORMATION
  Report Type: Spontaneous
  Country: US (occurrence: US)
  Receive Date: 20210804
  Receipt Date: 20211207
  Transmission Date: 20220303
  Serious: No
  Sender: FDA-Public Use
  Company Number: US-SA-SAC20210803000259

PATIENT
  Sex: Female

DRUGS (1)
  1. DUPIXENT [Suspect]
     Active Substance: DUPILUMAB
     Indication: Nasal polyps
     Dosage: 300 MG, QOW
     Route: 058
     Dates: start: 202102

REACTIONS (4)
  - Arthropathy [Unknown]
  - Mental status changes [Unknown]
  - General physical condition abnormal [Unknown]
  - Malaise [Unknown]

NARRATIVE: CASE EVENT DATE: 20210101
